FAERS Safety Report 15649736 (Version 1)
Quarter: 2020Q3

REPORT INFORMATION
  Report Type: Spontaneous
  Country: ES (occurrence: ES)
  Receive Date: 20181122
  Receipt Date: 20181122
  Transmission Date: 20201105
  Serious: Yes (Other)
  Sender: FDA-Public Use
  Company Number: ES-AUROBINDO-AUR-APL-2018-056194

PATIENT
  Age: 64 Year
  Sex: Female
  Weight: 60 kg

DRUGS (6)
  1. NIFURTIMOX. [Suspect]
     Active Substance: NIFURTIMOX
     Indication: AMERICAN TRYPANOSOMIASIS
     Dosage: 480 MILLIGRAM, DAILY
     Route: 048
     Dates: start: 20180721, end: 20180906
  2. CICLOSPORIN [Concomitant]
     Active Substance: CYCLOSPORINE
     Indication: HEART TRANSPLANT
     Dosage: 250 MILLIGRAM, DAILY
     Route: 048
     Dates: start: 20180626
  3. PREDNISONE. [Concomitant]
     Active Substance: PREDNISONE
     Indication: HEART TRANSPLANT
     Dosage: 15 MILLIGRAM, DAILY
     Route: 048
     Dates: start: 20180626
  4. SEPTRIN [Concomitant]
     Active Substance: SULFAMETHOXAZOLE\TRIMETHOPRIM
     Indication: HEART TRANSPLANT
     Dosage: 3 DOSAGE FORM, WEEK
     Route: 048
     Dates: start: 20180626, end: 20180906
  5. PRAVASTATIN. [Suspect]
     Active Substance: PRAVASTATIN
     Indication: HEART TRANSPLANT
     Dosage: 10 MILLIGRAM, DAILY
     Route: 048
     Dates: start: 20180626, end: 20180906
  6. IMUREL                             /00001501/ [Concomitant]
     Active Substance: AZATHIOPRINE SODIUM
     Indication: HEART TRANSPLANT
     Dosage: 150 MILLIGRAM, DAILY
     Route: 048
     Dates: start: 20180626

REACTIONS (4)
  - Vision blurred [Recovered/Resolved]
  - Dysmetria [Recovered/Resolved]
  - Nausea [Recovered/Resolved]
  - Asthenia [Recovered/Resolved]

NARRATIVE: CASE EVENT DATE: 20180901
